FAERS Safety Report 12053818 (Version 1)
Quarter: 2016Q1

REPORT INFORMATION
  Report Type: Spontaneous
  Country: US (occurrence: US)
  Receive Date: 20160209
  Receipt Date: 20160209
  Transmission Date: 20160526
  Serious: No
  Sender: FDA-Public Use
  Company Number: US-SA-2015SA182266

PATIENT
  Age: 62 Year
  Sex: Female

DRUGS (3)
  1. INFLUENZA VACCINE [Suspect]
     Active Substance: INFLUENZA VIRUS VACCINE
     Indication: IMMUNISATION
     Route: 065
     Dates: start: 20151015, end: 20151015
  2. PRALUENT [Suspect]
     Active Substance: ALIROCUMAB
     Indication: BLOOD CHOLESTEROL INCREASED
     Dosage: EVERY TWO WEEKS
     Route: 065
     Dates: start: 20151015
  3. PRALUENT [Suspect]
     Active Substance: ALIROCUMAB
     Indication: BLOOD CHOLESTEROL INCREASED
     Dosage: EVERY TWO WEEKS
     Route: 065
     Dates: start: 20151029, end: 20151029

REACTIONS (5)
  - Chills [Unknown]
  - Pain [Not Recovered/Not Resolved]
  - Pyrexia [Unknown]
  - Influenza like illness [Unknown]
  - Nausea [Unknown]
